FAERS Safety Report 16877381 (Version 8)
Quarter: 2023Q4

REPORT INFORMATION
  Report Type: Spontaneous
  Country: US (occurrence: US)
  Receive Date: 20191002
  Receipt Date: 20231220
  Transmission Date: 20240109
  Serious: No
  Sender: FDA-Public Use
  Company Number: US-PFIZER INC-2019421804

PATIENT
  Age: 80 Year
  Sex: Female
  Weight: 56.689 kg

DRUGS (1)
  1. PREMARIN [Suspect]
     Active Substance: ESTROGENS, CONJUGATED
     Indication: Hysterectomy
     Dosage: 1.25 MG, 1X/DAY
     Route: 048
     Dates: start: 1969

REACTIONS (2)
  - Hypoacusis [Unknown]
  - Cognitive disorder [Unknown]
